FAERS Safety Report 24640990 (Version 1)
Quarter: 2024Q4

REPORT INFORMATION
  Report Type: Spontaneous
  Country: US (occurrence: US)
  Receive Date: 20241120
  Receipt Date: 20241120
  Transmission Date: 20250115
  Serious: Yes (Other)
  Sender: RANBAXY
  Company Number: US-SUN PHARMACEUTICAL INDUSTRIES LTD-2024R1-480033

PATIENT
  Age: 48 Year
  Sex: Female

DRUGS (3)
  1. CAPECITABINE [Suspect]
     Active Substance: CAPECITABINE
     Indication: Breast cancer metastatic
     Dosage: 1000 MILLIGRAM/SQ. METER, BID
     Route: 065
  2. CAPECITABINE [Suspect]
     Active Substance: CAPECITABINE
     Dosage: 1500 MILLIGRAM, BID
     Route: 065
  3. DOCETAXEL [Concomitant]
     Active Substance: DOCETAXEL
     Indication: Breast cancer metastatic
     Dosage: 75 MILLIGRAM/SQ. METER
     Route: 065

REACTIONS (1)
  - Squamous cell carcinoma [Unknown]
